APPROVED DRUG PRODUCT: MYOVIEW 30ML
Active Ingredient: TECHNETIUM TC-99M TETROFOSMIN KIT
Strength: N/A
Dosage Form/Route: INJECTABLE;INJECTION
Application: N020372 | Product #002
Applicant: MEDI-PHYSICS INC DBA GE HEALTHCARE
Approved: Jul 7, 2005 | RLD: Yes | RS: Yes | Type: RX

PATENTS:
Patent 9549999 | Expires: Mar 10, 2030